FAERS Safety Report 6449773-7 (Version None)
Quarter: 2009Q4

REPORT INFORMATION
  Report Type: 
  Country: None (occurrence: None)
  Receive Date: 20091120
  Receipt Date: 20091116
  Transmission Date: 20100525
  Serious: Yes (Hospitalization, Other)
  Sender: FDA-Public Use
  Company Number: CA-ABBOTT-09P-028-0583334-00

PATIENT
  Sex: Female
  Weight: 78.088 kg

DRUGS (3)
  1. HUMIRA [Suspect]
     Indication: CROHN'S DISEASE
     Dosage: 160 MG AT WEEK 0, 80 MG AT WEEK 2, THEN 40 MG EVERY 2 WEEKS
     Route: 058
     Dates: start: 20090529, end: 20090826
  2. HUMIRA [Suspect]
     Route: 058
     Dates: start: 20091016
  3. VENLAFAXINE [Concomitant]
     Indication: DRUG USE FOR UNKNOWN INDICATION
     Dosage: 37.5MG; 1 IN 1 DAY

REACTIONS (8)
  - BLOOD URINE PRESENT [None]
  - CORONARY ARTERY OCCLUSION [None]
  - CYSTITIS [None]
  - DISCOMFORT [None]
  - DRUG DOSE OMISSION [None]
  - HEADACHE [None]
  - KIDNEY INFECTION [None]
  - NEPHROLITHIASIS [None]
